FAERS Safety Report 7966841 (Version 2)
Quarter: 2015Q1

REPORT INFORMATION
  Report Type: Spontaneous
  Country: US (occurrence: US)
  Receive Date: 20110531
  Receipt Date: 20150309
  Transmission Date: 20150721
  Serious: Yes (Hospitalization, Other)
  Sender: FDA-Public Use
  Company Number: US-ROCHE-760341

PATIENT
  Age: 16 Year
  Sex: Male
  Weight: 79.8 kg

DRUGS (1)
  1. ACCUTANE [Suspect]
     Active Substance: ISOTRETINOIN
     Indication: ACNE
     Route: 065
     Dates: start: 19970429, end: 199710

REACTIONS (9)
  - Depression [Unknown]
  - Suicidal ideation [Unknown]
  - Intestinal obstruction [Unknown]
  - Joint swelling [Unknown]
  - Crohn^s disease [Unknown]
  - Emotional distress [Not Recovered/Not Resolved]
  - Colonic fistula [Unknown]
  - Haemorrhoids [Unknown]
  - Inflammatory bowel disease [Unknown]

NARRATIVE: CASE EVENT DATE: 19971002
